FAERS Safety Report 7630276-9 (Version None)
Quarter: 2011Q3

REPORT INFORMATION
  Report Type: 
  Country: None (occurrence: None)
  Receive Date: 20110722
  Receipt Date: 20110709
  Transmission Date: 20111222
  Serious: Yes (Other)
  Sender: FDA-Public Use
  Company Number: PHHY2011US65347

PATIENT
  Age: 44 Year
  Sex: Male

DRUGS (5)
  1. SELEGILINE [Suspect]
     Indication: PARKINSON'S DISEASE
     Dosage: 2.5 MG, DAILY
  2. LEVODOPA [Suspect]
     Indication: PARKINSON'S DISEASE
     Dosage: UP TO 1000 MG
  3. AMANTADINE HCL [Suspect]
     Indication: PARKINSON'S DISEASE
     Dosage: 100 MG, THREE TIMES DAILY
  4. PRAMIPEXOLE DIHYDROCHLORIDE [Suspect]
     Indication: PARKINSON'S DISEASE
     Dosage: 1 MG, FOUR TIMES DAILY
  5. LEVODOPA [Suspect]
     Dosage: 900 MG, UNK

REACTIONS (3)
  - ASOCIAL BEHAVIOUR [None]
  - ABNORMAL BEHAVIOUR [None]
  - TREMOR [None]
